FAERS Safety Report 18246631 (Version 3)
Quarter: 2020Q4

REPORT INFORMATION
  Report Type: Spontaneous
  Country: US (occurrence: US)
  Receive Date: 20200909
  Receipt Date: 20201207
  Transmission Date: 20210113
  Serious: Yes (Other)
  Sender: FDA-Public Use
  Company Number: US-PFIZER INC-2020343240

PATIENT
  Age: 20 Year
  Sex: Female

DRUGS (1)
  1. SULFAMETHOXAZOLE/TRIMETHOPRIM [Suspect]
     Active Substance: SULFAMETHOXAZOLE\TRIMETHOPRIM
     Indication: SEPSIS
     Dosage: SULFAMETHOXAZOLE (800 MG) AND TRIMETHOPRIM (160MG) TWICE DAILY FOR 7 DAYS

REACTIONS (15)
  - Retinal aneurysm [Recovered/Resolved]
  - Macular oedema [Recovered/Resolved]
  - Eyelid ptosis [Unknown]
  - Drug hypersensitivity [Unknown]
  - Visual field defect [Recovered/Resolved]
  - Dry eye [Unknown]
  - Peripheral venous disease [Unknown]
  - Retinal haemorrhage [Recovered/Resolved]
  - Choroidal effusion [Unknown]
  - Pseudomyopia [Recovered/Resolved]
  - Eye disorder [Recovered/Resolved]
  - Blepharitis [Unknown]
  - Blindness [Recovered/Resolved]
  - Angle closure glaucoma [Unknown]
  - Maculopathy [Recovered/Resolved]
